FAERS Safety Report 8132150-0 (Version None)
Quarter: 2012Q1

REPORT INFORMATION
  Report Type: 
  Country: None (occurrence: None)
  Receive Date: 20120208
  Receipt Date: 20120131
  Transmission Date: 20120608
  Serious: Yes (Other)
  Sender: FDA-Public Use
  Company Number: 1000027584

PATIENT
  Age: 17 Year
  Sex: Male

DRUGS (2)
  1. ZOLOFT [Suspect]
  2. CELEXA [Suspect]

REACTIONS (1)
  - HOMICIDE [None]
